FAERS Safety Report 7393702-9 (Version None)
Quarter: 2011Q2

REPORT INFORMATION
  Report Type: 
  Country: None (occurrence: None)
  Receive Date: 20110405
  Receipt Date: 20110324
  Transmission Date: 20111010
  Serious: Yes (Other)
  Sender: FDA-Public Use
  Company Number: FR-JNJFOC-20110310809

PATIENT
  Sex: Female

DRUGS (4)
  1. REMICADE [Suspect]
     Indication: CROHN'S DISEASE
     Route: 042
  2. SOLU-MEDROL [Concomitant]
     Indication: PREMEDICATION
  3. REMICADE [Suspect]
     Route: 042
  4. AERIUS [Concomitant]
     Indication: PREMEDICATION

REACTIONS (1)
  - ANGIOEDEMA [None]
